FAERS Safety Report 7418675-1 (Version None)
Quarter: 2011Q2

REPORT INFORMATION
  Report Type: 
  Country: None (occurrence: None)
  Receive Date: 20110415
  Receipt Date: 20110316
  Transmission Date: 20111010
  Serious: No
  Sender: FDA-Public Use
  Company Number: US-BAYER-2011-026338

PATIENT
  Sex: Female
  Weight: 47 kg

DRUGS (8)
  1. ASPIRIN [Concomitant]
     Dosage: UNK
  2. ALEVE (CAPLET) [Suspect]
     Indication: SURGERY
  3. FISH OIL [Concomitant]
     Dosage: UNK
  4. ALEVE (CAPLET) [Suspect]
     Indication: ARTHRITIS
  5. MULTI-VITAMIN [Concomitant]
     Dosage: UNK
  6. SIMVASTATIN [Concomitant]
     Dosage: UNK
  7. ALEVE (CAPLET) [Suspect]
     Indication: HIP ARTHROPLASTY
     Dosage: 1 DF, BID
     Route: 048
  8. THYROID PREPARATIONS [Concomitant]
     Dosage: UNK

REACTIONS (1)
  - NO ADVERSE EVENT [None]
